FAERS Safety Report 10186440 (Version 1)
Quarter: 2014Q2

REPORT INFORMATION
  Report Type: Spontaneous
  Country: US (occurrence: US)
  Receive Date: 20140521
  Receipt Date: 20140521
  Transmission Date: 20141212
  Serious: No
  Sender: FDA-Public Use
  Company Number: US-ASTRAZENECA-2013SE91496

PATIENT
  Sex: Female

DRUGS (1)
  1. PULMICORT FLEXHALER [Suspect]
     Indication: COUGH
     Dosage: 180MCG 1 INHALATION DAILY
     Route: 055
     Dates: start: 201311

REACTIONS (3)
  - Cough [Not Recovered/Not Resolved]
  - Circumstance or information capable of leading to medication error [Unknown]
  - Intentional product misuse [Unknown]
